FAERS Safety Report 7483902-1 (Version None)
Quarter: 2011Q2

REPORT INFORMATION
  Report Type: 
  Country: None (occurrence: None)
  Receive Date: 20110513
  Receipt Date: 20110513
  Transmission Date: 20111010
  Serious: Yes (Hospitalization)
  Sender: FDA-Public Use
  Company Number: None

PATIENT
  Age: 64 Year
  Sex: Male
  Weight: 73 kg

DRUGS (1)
  1. PIPERACILLIN AND TAZOBACTAM [Suspect]
     Indication: PNEUMONIA
     Dosage: 3.375 GM QID IV
     Route: 042
     Dates: start: 20110331, end: 20110405

REACTIONS (3)
  - RASH [None]
  - OEDEMA PERIPHERAL [None]
  - RENAL FAILURE ACUTE [None]
